FAERS Safety Report 4941018-X (Version None)
Quarter: 2006Q1

REPORT INFORMATION
  Report Type: 
  Country: None (occurrence: None)
  Receive Date: 20060313
  Receipt Date: 20060302
  Transmission Date: 20060701
  Serious: Yes (Death)
  Sender: FDA-Public Use
  Company Number: GB-JNJFOC-20040808653

PATIENT
  Age: 75 Year
  Sex: Female

DRUGS (4)
  1. INFLIXIMAB [Suspect]
     Indication: RHEUMATOID ARTHRITIS
     Route: 042
  2. AZATHIOPRINE [Suspect]
     Indication: RHEUMATOID ARTHRITIS
  3. PREDNISOLONE [Concomitant]
  4. PREDNISOLONE [Concomitant]
     Indication: RHEUMATOID ARTHRITIS

REACTIONS (11)
  - ALVEOLITIS FIBROSING [None]
  - CONDITION AGGRAVATED [None]
  - CREPITATIONS [None]
  - CUTANEOUS VASCULITIS [None]
  - DISEASE PROGRESSION [None]
  - INTERSTITIAL LUNG DISEASE [None]
  - LUNG DISORDER [None]
  - PULMONARY FIBROSIS [None]
  - PYREXIA [None]
  - RHEUMATOID VASCULITIS [None]
  - TACHYPNOEA [None]
